FAERS Safety Report 21642253 (Version 1)
Quarter: 2022Q4

REPORT INFORMATION
  Report Type: Spontaneous
  Country: US (occurrence: US)
  Receive Date: 20221125
  Receipt Date: 20221125
  Transmission Date: 20230113
  Serious: No
  Sender: FDA-Public Use
  Company Number: US-BTGSP-US-BTGSP-22-0123

PATIENT
  Age: 42 Year
  Sex: Male

DRUGS (2)
  1. CROFAB [Suspect]
     Active Substance: CROTALIDAE POLYVALENT IMMUNE FAB (OVINE)
     Indication: Snake bite
     Dosage: 6 VIALS, 2.5 HOURS AFTER THE SNAKE BITE
     Route: 065
     Dates: start: 20220928
  2. CROFAB [Suspect]
     Active Substance: CROTALIDAE POLYVALENT IMMUNE FAB (OVINE)
     Dosage: 6 VIALS
     Route: 065
     Dates: start: 20220929

REACTIONS (2)
  - Musculoskeletal stiffness [Unknown]
  - Therapy change [Unknown]

NARRATIVE: CASE EVENT DATE: 20220929
